FAERS Safety Report 9215596 (Version 2)
Quarter: 2013Q2

REPORT INFORMATION
  Report Type: Spontaneous
  Country: BR (occurrence: BR)
  Receive Date: 20130408
  Receipt Date: 20130612
  Transmission Date: 20140414
  Serious: Yes (Other)
  Sender: FDA-Public Use
  Company Number: BR-AMGEN-BRASP2012084359

PATIENT
  Age: 51 Year
  Sex: Female
  Weight: 65 kg

DRUGS (3)
  1. ENBREL [Suspect]
     Indication: RHEUMATOID ARTHRITIS
     Dosage: 50 MG, ONCE WEEKLY
     Route: 058
     Dates: start: 201212, end: 201212
  2. ENBREL [Suspect]
     Indication: JUVENILE IDIOPATHIC ARTHRITIS
     Dosage: UNK
     Route: 065
  3. LEFLUNOMIDE [Concomitant]
     Indication: JUVENILE IDIOPATHIC ARTHRITIS
     Dosage: 20 MG, 1X/DAY
     Dates: start: 2012

REACTIONS (16)
  - Arthropathy [Unknown]
  - Joint injury [Unknown]
  - Fall [Unknown]
  - Injection site swelling [Unknown]
  - Injection site erythema [Unknown]
  - Fear [Unknown]
  - Memory impairment [Unknown]
  - Flushing [Unknown]
  - Wrong technique in drug usage process [Unknown]
  - Pyrexia [Unknown]
  - Hypersensitivity [Unknown]
  - Injection site reaction [Not Recovered/Not Resolved]
  - Injection site warmth [Unknown]
  - Injection site oedema [Unknown]
  - Injection site pain [Unknown]
  - Injection site pruritus [Unknown]
